FAERS Safety Report 8947163 (Version 2)
Quarter: 2013Q1

REPORT INFORMATION
  Report Type: Report from Study
  Country: CL (occurrence: CL)
  Receive Date: 20121205
  Receipt Date: 20130115
  Transmission Date: 20140127
  Serious: Yes (Hospitalization, Other)
  Sender: FDA-Public Use
  Company Number: CL-ROCHE-1164390

PATIENT
  Age: 46 Year
  Sex: Male
  Weight: 65 kg

DRUGS (1)
  1. CAPECITABINE [Suspect]
     Indication: COLON CANCER
     Route: 048
     Dates: start: 20120428, end: 20120913

REACTIONS (4)
  - Intestinal obstruction [Recovered/Resolved]
  - Gastric infection [Not Recovered/Not Resolved]
  - Anaemia [Not Recovered/Not Resolved]
  - Altered state of consciousness [Not Recovered/Not Resolved]
